FAERS Safety Report 5329954-6 (Version None)
Quarter: 2007Q2

REPORT INFORMATION
  Report Type: 
  Country: None (occurrence: None)
  Receive Date: 20070521
  Receipt Date: 20070509
  Transmission Date: 20071010
  Serious: Yes (Hospitalization)
  Sender: FDA-Public Use
  Company Number: BE-JNJFOC-20070502900

PATIENT
  Age: 3 Year
  Sex: Female
  Weight: 15.7 kg

DRUGS (1)
  1. IMODIUM [Suspect]
     Indication: DIARRHOEA
     Route: 048

REACTIONS (3)
  - CONFUSIONAL STATE [None]
  - SOMNOLENCE [None]
  - VERTIGO [None]
